FAERS Safety Report 5149426-1 (Version None)
Quarter: 2006Q4

REPORT INFORMATION
  Report Type: 
  Country: None (occurrence: None)
  Receive Date: 20061113
  Receipt Date: 20060105
  Transmission Date: 20070319
  Serious: No
  Sender: FDA-Public Use
  Company Number: 431580

PATIENT
  Sex: Female

DRUGS (1)
  1. COREG [Suspect]
     Indication: DRUG USE FOR UNKNOWN INDICATION
     Dosage: 25MG UNKNOWN
     Route: 048

REACTIONS (1)
  - ALOPECIA [None]
